FAERS Safety Report 23830460 (Version 3)
Quarter: 2024Q3

REPORT INFORMATION
  Report Type: Spontaneous
  Country: TN (occurrence: TN)
  Receive Date: 20240508
  Receipt Date: 20240709
  Transmission Date: 20241017
  Serious: Yes (Life-Threatening, Hospitalization, Other)
  Sender: MACLEODS
  Company Number: TN-MACLEODS PHARMA-MAC2024047142

PATIENT

DRUGS (2)
  1. AMLODIPINE [Suspect]
     Active Substance: AMLODIPINE BESYLATE
     Indication: Product used for unknown indication
     Route: 048
  2. PERINDOPRIL ARGININE [Suspect]
     Active Substance: PERINDOPRIL ARGININE
     Indication: Product used for unknown indication
     Route: 048

REACTIONS (12)
  - Distributive shock [Recovered/Resolved]
  - Acute kidney injury [Recovered/Resolved]
  - Pulmonary oedema [Recovered/Resolved]
  - Hyperlactacidaemia [Recovered/Resolved]
  - Metabolic acidosis [Recovered/Resolved]
  - Multi-organ disorder [Recovered/Resolved]
  - Hepatic function abnormal [Recovered/Resolved]
  - Toxicity to various agents [Recovered/Resolved]
  - Blood glucose increased [Recovered/Resolved]
  - Vasoplegia syndrome [Recovered/Resolved]
  - Electrocardiogram ST segment depression [Recovered/Resolved]
  - Atrial tachycardia [Recovered/Resolved]
